FAERS Safety Report 5270370-3 (Version None)
Quarter: 2007Q1

REPORT INFORMATION
  Report Type: 
  Country: None (occurrence: None)
  Receive Date: 20070320
  Receipt Date: 20070312
  Transmission Date: 20070707
  Serious: Yes (Hospitalization)
  Sender: FDA-Public Use
  Company Number: TR-ABBOTT-07P-161-0361581-00

PATIENT
  Sex: Female
  Weight: 65 kg

DRUGS (2)
  1. REDUCTIL 15MG [Suspect]
     Indication: WEIGHT CONTROL
     Route: 048
     Dates: start: 20070305, end: 20070305
  2. LDA (HERBAL ALGAE) [Concomitant]
     Indication: WEIGHT CONTROL
     Route: 048

REACTIONS (1)
  - HYPOAESTHESIA [None]
